FAERS Safety Report 6768381-1 (Version None)
Quarter: 2010Q2

REPORT INFORMATION
  Report Type: 
  Country: None (occurrence: None)
  Receive Date: 20100614
  Receipt Date: 20100531
  Transmission Date: 20101027
  Serious: Yes (Hospitalization)
  Sender: FDA-Public Use
  Company Number: PHHY2010DE35676

PATIENT
  Sex: Male
  Weight: 82 kg

DRUGS (2)
  1. TASIGNA [Suspect]
     Indication: CHRONIC MYELOID LEUKAEMIA
  2. HYDROXYUREA [Concomitant]
     Indication: CHRONIC MYELOID LEUKAEMIA
     Dosage: 500 MG, DAILY
     Route: 048
     Dates: start: 20100518, end: 20100531

REACTIONS (10)
  - ASTHENIA [None]
  - BLADDER DISORDER [None]
  - CAUDA EQUINA SYNDROME [None]
  - DUODENAL ULCER [None]
  - FAECAL INCONTINENCE [None]
  - HEADACHE [None]
  - HYPOAESTHESIA [None]
  - NEURALGIA [None]
  - PARALYSIS FLACCID [None]
  - SPINAL ANAESTHESIA [None]
